FAERS Safety Report 6551361-9 (Version None)
Quarter: 2010Q1

REPORT INFORMATION
  Report Type: 
  Country: None (occurrence: None)
  Receive Date: 20100120
  Receipt Date: 20100105
  Transmission Date: 20100710
  Serious: Yes (Life-Threatening, Other)
  Sender: FDA-Public Use
  Company Number: AUR-APL-2009-01373

PATIENT
  Age: 24 Year
  Sex: Male

DRUGS (2)
  1. CITALOPRAM [Suspect]
     Indication: ANXIETY
     Dosage: 20MG, DAILY, ORAL
     Route: 048
     Dates: start: 20070101, end: 20070301
  2. SEROQUEL [Suspect]
     Indication: SCHIZOPHRENIA
     Dosage: UNK, UNK, ORAL
     Route: 048
     Dates: start: 20061201

REACTIONS (3)
  - ERECTILE DYSFUNCTION [None]
  - SUICIDAL IDEATION [None]
  - SUICIDE ATTEMPT [None]
